FAERS Safety Report 9060692 (Version 1)
Quarter: 2013Q1

REPORT INFORMATION
  Report Type: Spontaneous
  Country: US (occurrence: US)
  Receive Date: 20130204
  Receipt Date: 20130204
  Transmission Date: 20140127
  Serious: No
  Sender: FDA-Public Use
  Company Number: US-BAYER-2013-008147

PATIENT
  Sex: Male

DRUGS (2)
  1. ALEVE CAPLET/TABLET,MIDOL EXTENDED RELIEF CAPLET [Suspect]
     Indication: BACK PAIN
     Dosage: 1 DF, QD
     Route: 048
     Dates: end: 20130108
  2. NIFEDIPINE [Concomitant]

REACTIONS (3)
  - Platelet count decreased [Not Recovered/Not Resolved]
  - Therapeutic response unexpected [None]
  - Incorrect drug administration duration [None]
